FAERS Safety Report 7782118-9 (Version None)
Quarter: 2011Q3

REPORT INFORMATION
  Report Type: 
  Country: None (occurrence: None)
  Receive Date: 20110927
  Receipt Date: 20110914
  Transmission Date: 20111222
  Serious: Yes (Hospitalization, Other)
  Sender: FDA-Public Use
  Company Number: US-ELI_LILLY_AND_COMPANY-US201007004447

PATIENT
  Sex: Male

DRUGS (3)
  1. FORTEO [Suspect]
     Indication: OSTEOPOROSIS
     Dosage: 20 UG, DAILY (1/D)
     Route: 065
  2. FORTEO [Suspect]
     Dosage: 20 UG, QD
     Route: 065
  3. FORTEO [Suspect]
     Dosage: 20 UG, QD
     Route: 065
     Dates: end: 20110308

REACTIONS (10)
  - SCOLIOSIS [None]
  - MOBILITY DECREASED [None]
  - PAIN IN EXTREMITY [None]
  - PNEUMONIA [None]
  - HAEMORRHAGE [None]
  - FALL [None]
  - GAIT DISTURBANCE [None]
  - FATIGUE [None]
  - FOOT DEFORMITY [None]
  - MUSCULOSKELETAL PAIN [None]
